FAERS Safety Report 8789493 (Version 1)
Quarter: 2012Q4

REPORT INFORMATION
  Report Type: Spontaneous
  Country: US (occurrence: None)
  Receive Date: 20120906
  Receipt Date: 20120906
  Transmission Date: 20130627
  Serious: Yes (Death, Hospitalization)
  Sender: FDA-Public Use
  Company Number: 2012AL000076

PATIENT
  Age: 61 Year
  Sex: Male

DRUGS (2)
  1. FOLOTYN [Suspect]
     Route: 042
  2. XENAZINE [Concomitant]

REACTIONS (4)
  - Arrhythmia [None]
  - Candidiasis [None]
  - Dehydration [None]
  - Device failure [None]
